FAERS Safety Report 4911684-3 (Version None)
Quarter: 2006Q1

REPORT INFORMATION
  Report Type: 
  Country: None (occurrence: None)
  Receive Date: 20060213
  Receipt Date: 20060130
  Transmission Date: 20060701
  Serious: Yes (Hospitalization, Other)
  Sender: FDA-Public Use
  Company Number: 2006016031

PATIENT
  Age: 27 Year
  Sex: Female
  Weight: 68.0396 kg

DRUGS (1)
  1. ZITHROMAX [Suspect]
     Indication: PELVIC INFLAMMATORY DISEASE
     Dosage: ONCE, ORAL
     Route: 048
     Dates: start: 20060116, end: 20060116

REACTIONS (3)
  - AGITATION [None]
  - DYSGEUSIA [None]
  - OVARIAN CYST [None]
